FAERS Safety Report 17248253 (Version 2)
Quarter: 2020Q1

REPORT INFORMATION
  Report Type: Spontaneous
  Country: BR (occurrence: BR)
  Receive Date: 20200108
  Receipt Date: 20200129
  Transmission Date: 20200409
  Serious: Yes (Death, Other)
  Sender: FDA-Public Use
  Company Number: BR-PFIZER INC-2020008515

PATIENT
  Age: 68 Year
  Sex: Male

DRUGS (1)
  1. SUTENT [Suspect]
     Active Substance: SUNITINIB MALATE
     Dosage: UNK
     Dates: start: 20191207, end: 20200101

REACTIONS (11)
  - Respiratory failure [Fatal]
  - Pain [Unknown]
  - Malaise [Unknown]
  - Constipation [Unknown]
  - Asthenia [Unknown]
  - Nausea [Unknown]
  - Feeling abnormal [Unknown]
  - Abdominal distension [Unknown]
  - Hiccups [Unknown]
  - Neoplasm progression [Fatal]
  - Abdominal pain [Unknown]

NARRATIVE: CASE EVENT DATE: 20191229
